FAERS Safety Report 6296257-5 (Version None)
Quarter: 2009Q3

REPORT INFORMATION
  Report Type: 
  Country: None (occurrence: None)
  Receive Date: 20090804
  Receipt Date: 20090730
  Transmission Date: 20100115
  Serious: Yes (Other)
  Sender: FDA-Public Use
  Company Number: US-PFIZER INC-2009194018

PATIENT
  Sex: Female

DRUGS (3)
  1. CELEBREX [Suspect]
     Dosage: UNK
     Route: 048
     Dates: start: 20020101
  2. BEXTRA [Suspect]
     Indication: OSTEOARTHRITIS
     Dosage: UNK
     Dates: start: 20040201
  3. BEXTRA [Suspect]
     Indication: MUSCLE SPASMS

REACTIONS (3)
  - CEREBROVASCULAR ACCIDENT [None]
  - MYOCARDIAL INFARCTION [None]
  - RENAL FAILURE [None]
